FAERS Safety Report 23891103 (Version 2)
Quarter: 2024Q2

REPORT INFORMATION
  Report Type: Other
  Country: US (occurrence: None)
  Receive Date: 20240523
  Receipt Date: 20240529
  Transmission Date: 20240715
  Serious: Yes (Hospitalization)
  Sender: FDA-Public Use
  Company Number: US-ROCHE-3565696

PATIENT
  Age: 50 Year
  Sex: Female

DRUGS (1)
  1. OCREVUS [Suspect]
     Active Substance: OCRELIZUMAB
     Indication: Primary progressive multiple sclerosis
     Dosage: THEN 600 MG FOR EVERY 6 MONTHS; DATE OF TREATMENT: 14/FEB/2023, 18/JUL/2023,
     Route: 042
     Dates: start: 20230131

REACTIONS (6)
  - Pneumonia [Recovered/Resolved]
  - Cardiomegaly [Recovered/Resolved]
  - Pleural effusion [Unknown]
  - Thyroid neoplasm [Unknown]
  - Blood pressure increased [Unknown]
  - Thyroid mass [Unknown]

NARRATIVE: CASE EVENT DATE: 20240408
